FAERS Safety Report 9944146 (Version 1)
Quarter: 2014Q1

REPORT INFORMATION
  Report Type: Spontaneous
  Country: US (occurrence: US)
  Receive Date: 20140303
  Receipt Date: 20140303
  Transmission Date: 20141002
  Serious: No
  Sender: FDA-Public Use
  Company Number: US-ABBVIE-13P-163-1049903-00

PATIENT
  Sex: Male

DRUGS (4)
  1. HUMIRA [Suspect]
     Indication: RHEUMATOID ARTHRITIS
     Dates: start: 201211, end: 201211
  2. TOPROL [Concomitant]
     Indication: BLOOD PRESSURE
  3. PLAVIX [Concomitant]
     Indication: BLOOD CHOLESTEROL
  4. LUNESTA [Concomitant]
     Indication: SLEEP DISORDER

REACTIONS (1)
  - Rash [Recovered/Resolved]
